FAERS Safety Report 16594642 (Version 2)
Quarter: 2019Q3

REPORT INFORMATION
  Report Type: Spontaneous
  Country: BR (occurrence: BR)
  Receive Date: 20190718
  Receipt Date: 20190809
  Transmission Date: 20191004
  Serious: Yes (Other)
  Sender: FDA-Public Use
  Company Number: BR-CELGENEUS-BRA-20190704431

PATIENT
  Sex: Male

DRUGS (1)
  1. VIDAZA [Suspect]
     Active Substance: AZACITIDINE
     Indication: MYELODYSPLASTIC SYNDROME
     Dosage: 100 MG AND 200 MG
     Route: 065
     Dates: start: 20190114

REACTIONS (4)
  - Autoimmune disorder [Unknown]
  - Haemoglobin decreased [Unknown]
  - Treatment noncompliance [Unknown]
  - Immune system disorder [Unknown]

NARRATIVE: CASE EVENT DATE: 2019
